FAERS Safety Report 4728343-2 (Version None)
Quarter: 2005Q3

REPORT INFORMATION
  Report Type: 
  Country: None (occurrence: None)
  Receive Date: 20050729
  Receipt Date: 20050720
  Transmission Date: 20060218
  Serious: Yes (Other)
  Sender: FDA-Public Use
  Company Number: JP-BRISTOL-MYERS SQUIBB COMPANY-13044268

PATIENT
  Age: 48 Year
  Sex: Male

DRUGS (2)
  1. MEVALOTIN [Suspect]
     Indication: HYPERCHOLESTEROLAEMIA
     Route: 048
  2. ATORVASTATIN CALCIUM [Suspect]
     Indication: HYPERCHOLESTEROLAEMIA
     Route: 048
     Dates: start: 20020601, end: 20021101

REACTIONS (1)
  - DIABETES MELLITUS [None]
